FAERS Safety Report 8306392-5 (Version None)
Quarter: 2012Q2

REPORT INFORMATION
  Report Type: 
  Country: None (occurrence: None)
  Receive Date: 20120423
  Receipt Date: 20120415
  Transmission Date: 20120825
  Serious: Yes (Hospitalization, Other)
  Sender: FDA-Public Use
  Company Number: US-ABBOTT-12P-163-0925911-00

PATIENT
  Age: 58 Year
  Sex: Female

DRUGS (35)
  1. LAMICTAL [Concomitant]
     Indication: PRODUCT USED FOR UNKNOWN INDICATION
     Dosage: 150 MG EVERY MORNING
  2. CALCIUM CITRATE [Concomitant]
     Indication: PRODUCT USED FOR UNKNOWN INDICATION
     Dosage: 350MG EVERY AM AND 220MG EVERY NIGHT
  3. LOVAZA [Concomitant]
     Indication: PRODUCT USED FOR UNKNOWN INDICATION
  4. ZOFRAN [Concomitant]
     Indication: NAUSEA
     Route: 060
  5. BENTYL [Concomitant]
     Indication: ABDOMINAL PAIN
  6. BACLOFEN [Concomitant]
     Indication: MUSCLE SPASMS
  7. REQUIP [Concomitant]
     Indication: MUSCLE SPASMS
  8. ORABASE [Concomitant]
     Indication: CROHN'S DISEASE
     Dosage: PASTE TO THE TONGUE
  9. MAGNESIUM GLYCINATE [Concomitant]
     Indication: PRODUCT USED FOR UNKNOWN INDICATION
     Dosage: 200 MG EVERY MORNING
  10. BETHANECHOL [Concomitant]
     Indication: PRODUCT USED FOR UNKNOWN INDICATION
  11. REGLAN [Concomitant]
     Indication: PRODUCT USED FOR UNKNOWN INDICATION
  12. RITALIN [Concomitant]
     Indication: PRODUCT USED FOR UNKNOWN INDICATION
     Dosage: 40MG EVERY AM AND 20MG EVERY NOON
  13. EMSAM [Concomitant]
     Indication: PRODUCT USED FOR UNKNOWN INDICATION
     Dosage: 6 MG - 24 HR PATCH WHICH IS AN MAOI
  14. SYNTHROID [Concomitant]
     Indication: PRODUCT USED FOR UNKNOWN INDICATION
     Dosage: 0.025 MG 5/WEEK, SKIPS SUNDAY AND THURSDAY
  15. FLEXERIL [Concomitant]
     Indication: BACK PAIN
     Dosage: 10 TO 20MG AS NEEDED
  16. RECLAST [Concomitant]
     Indication: OSTEOPOROSIS
  17. COMPAZINE [Concomitant]
     Indication: NAUSEA
  18. DOMPERIDONE [Concomitant]
     Indication: PRODUCT USED FOR UNKNOWN INDICATION
  19. AMBIEN CR [Concomitant]
     Indication: INSOMNIA
     Dosage: 12.5 MG EVERY NIGHT
  20. CLONAZEPAM [Concomitant]
     Indication: ANXIETY
     Dosage: 1 TO 1.5 OF 2 MG TABS AS NEEDED
  21. NEURONTIN [Concomitant]
     Indication: BACK PAIN
  22. IRON [Concomitant]
     Indication: ANAEMIA
     Route: 042
  23. MULTI-VITAMIN [Concomitant]
     Indication: PRODUCT USED FOR UNKNOWN INDICATION
  24. BACLOFEN [Concomitant]
  25. REQUIP [Concomitant]
  26. VICODIN [Concomitant]
     Indication: PAIN
     Dosage: 1 TO 2 TABLETS AS NEEDED
  27. VITAMIN D [Concomitant]
     Indication: PRODUCT USED FOR UNKNOWN INDICATION
     Dosage: 5000 MG- PIERCED AND SQUEEZE UNDER TONGUE WEEKLY
  28. CALCITRIOL [Concomitant]
     Indication: VITAMIN D DECREASED
     Dosage: 0.25 MG ON MONDAY, WEDNESDAY AND FRIDAY
  29. KENALOG [Concomitant]
     Indication: PRODUCT USED FOR UNKNOWN INDICATION
  30. HUMIRA [Suspect]
     Indication: CROHN'S DISEASE
     Dates: start: 20120303
  31. ERYTHROMYCIN [Concomitant]
     Indication: PRODUCT USED FOR UNKNOWN INDICATION
  32. OMEPRAZOLE [Concomitant]
     Indication: GASTRITIS
     Dosage: 20 MG EVERY MORNING
  33. LASIX [Concomitant]
     Indication: PRODUCT USED FOR UNKNOWN INDICATION
  34. VITAMIN B-12 [Concomitant]
     Indication: PRODUCT USED FOR UNKNOWN INDICATION
     Dosage: 1 CC MONTHLY
  35. EXCEDRIN ASPIRIN FREE [Concomitant]
     Indication: PRODUCT USED FOR UNKNOWN INDICATION

REACTIONS (6)
  - LIMB CRUSHING INJURY [None]
  - DRUG INEFFECTIVE [None]
  - FALL [None]
  - PRURITUS GENERALISED [None]
  - NIGHT SWEATS [None]
  - BASAL CELL CARCINOMA [None]
